FAERS Safety Report 4946032-6 (Version None)
Quarter: 2006Q1

REPORT INFORMATION
  Report Type: 
  Country: None (occurrence: None)
  Receive Date: 20060316
  Receipt Date: 20041230
  Transmission Date: 20060701
  Serious: Yes (Hospitalization)
  Sender: FDA-Public Use
  Company Number: US-MERCK-0501USA00023

PATIENT
  Age: 45 Year
  Sex: Male
  Weight: 105 kg

DRUGS (12)
  1. VIOXX [Suspect]
     Indication: PAIN IN EXTREMITY
     Route: 048
     Dates: start: 19990101, end: 20040901
  2. VIOXX [Suspect]
     Route: 048
     Dates: start: 20020301, end: 20020617
  3. VIOXX [Suspect]
     Route: 048
     Dates: start: 20031115
  4. VIOXX [Suspect]
     Route: 048
     Dates: start: 20040315, end: 20040921
  5. VIOXX [Suspect]
     Indication: BACK PAIN
     Route: 048
     Dates: start: 19990101, end: 20040901
  6. VIOXX [Suspect]
     Route: 048
     Dates: start: 20020301, end: 20020617
  7. VIOXX [Suspect]
     Route: 048
     Dates: start: 20031115
  8. VIOXX [Suspect]
     Route: 048
     Dates: start: 20040315, end: 20040921
  9. ACIPHEX [Concomitant]
     Route: 065
  10. [THERAPY UNSPECIFIED] [Concomitant]
     Indication: ARTHRITIS
     Route: 065
  11. GLUCOVANCE [Concomitant]
     Indication: DIABETES MELLITUS NON-INSULIN-DEPENDENT
     Route: 065
  12. [THERAPY UNSPECIFIED] [Concomitant]
     Indication: GOUT
     Route: 065

REACTIONS (27)
  - ARTERIOSCLEROSIS CORONARY ARTERY [None]
  - CARPAL TUNNEL SYNDROME [None]
  - CERVICOBRACHIAL SYNDROME [None]
  - CHEST DISCOMFORT [None]
  - CHEST PAIN [None]
  - CORONARY ARTERY DISEASE [None]
  - CORONARY ARTERY RESTENOSIS [None]
  - DIABETES MELLITUS NON-INSULIN-DEPENDENT [None]
  - DIVERTICULUM [None]
  - DUODENITIS [None]
  - EMOTIONAL DISORDER [None]
  - EMOTIONAL DISTRESS [None]
  - EPICONDYLITIS [None]
  - GASTRIC PH DECREASED [None]
  - GASTRITIS EROSIVE [None]
  - GOUT [None]
  - HAEMORRHOIDS [None]
  - HYPERLIPIDAEMIA [None]
  - HYPERTENSION [None]
  - HYPERURICAEMIA [None]
  - MYOCARDIAL INFARCTION [None]
  - MYOCARDIAL ISCHAEMIA [None]
  - NEUROPATHY PERIPHERAL [None]
  - OSTEOARTHRITIS [None]
  - REPETITIVE STRAIN INJURY [None]
  - SINUS CONGESTION [None]
  - SLEEP APNOEA SYNDROME [None]
